FAERS Safety Report 15665972 (Version 2)
Quarter: 2019Q1

REPORT INFORMATION
  Report Type: Spontaneous
  Country: US (occurrence: US)
  Receive Date: 20181128
  Receipt Date: 20190102
  Transmission Date: 20190417
  Serious: Yes (Hospitalization)
  Sender: FDA-Public Use
  Company Number: US-LEXICON PHARMACEUTICALS, INC-18-1606-01492

PATIENT
  Age: 51 Year
  Sex: Female

DRUGS (24)
  1. TELOTRISTAT ETHYL [Suspect]
     Active Substance: TELOTRISTAT ETHYL
     Indication: CARCINOID SYNDROME
     Route: 048
     Dates: start: 20171128
  2. TELOTRISTAT ETHYL [Suspect]
     Active Substance: TELOTRISTAT ETHYL
     Indication: CARCINOID TUMOUR
  3. MORPHINE SULFATE. [Concomitant]
     Active Substance: MORPHINE SULFATE
  4. PROVENTIL [Concomitant]
     Active Substance: ALBUTEROL
  5. COLACE [Concomitant]
     Active Substance: DOCUSATE SODIUM
  6. ENOXAPARIN [Concomitant]
     Active Substance: ENOXAPARIN
     Dosage: 100 MG/ML
  7. FOLIC ACID. [Concomitant]
     Active Substance: FOLIC ACID
  8. BENAZEPRIL HCL [Concomitant]
     Active Substance: BENAZEPRIL HYDROCHLORIDE
  9. POLYETHYLENE GLYCOL [Concomitant]
     Active Substance: POLYETHYLENE GLYCOLS
  10. SANDOSTATIN [Concomitant]
     Active Substance: OCTREOTIDE ACETATE
     Dosage: 100 MCG/ML
  11. RANITIDINE. [Concomitant]
     Active Substance: RANITIDINE
  12. LORAZEPAM. [Concomitant]
     Active Substance: LORAZEPAM
  13. HYDROCO / APAP [Concomitant]
     Dosage: 10-325 MG
  14. CLARITIN [Concomitant]
     Active Substance: LORATADINE
  15. NYSTATIN. [Concomitant]
     Active Substance: NYSTATIN
  16. LASIX [Concomitant]
     Active Substance: FUROSEMIDE
     Route: 048
  17. ALBUTEROL. [Concomitant]
     Active Substance: ALBUTEROL
  18. CHOLECALCIFEROL [Concomitant]
     Active Substance: CHOLECALCIFEROL
  19. SENNA [Concomitant]
     Active Substance: SENNA LEAF\SENNOSIDES\SENNOSIDES A AND B
     Dosage: 176 MG / 5 ML
  20. COMPAZINE [Concomitant]
     Active Substance: PROCHLORPERAZINE MALEATE
  21. LASIX [Concomitant]
     Active Substance: FUROSEMIDE
     Route: 048
  22. GABAPENTIN. [Concomitant]
     Active Substance: GABAPENTIN
  23. MUPIROCIN. [Concomitant]
     Active Substance: MUPIROCIN
  24. SPIRONOLACTONE. [Concomitant]
     Active Substance: SPIRONOLACTONE

REACTIONS (1)
  - Septic shock [Recovered/Resolved]

NARRATIVE: CASE EVENT DATE: 20181114
